FAERS Safety Report 18692927 (Version 1)
Quarter: 2021Q1

REPORT INFORMATION
  Report Type: Spontaneous
  Country: US (occurrence: US)
  Receive Date: 20210104
  Receipt Date: 20210104
  Transmission Date: 20210419
  Serious: Yes (Other)
  Sender: FDA-Public Use
  Company Number: US-AMGEN-USASP2020210882

PATIENT
  Age: 57 Year
  Sex: Male

DRUGS (3)
  1. PREDNISONE. [Concomitant]
     Active Substance: PREDNISONE
     Indication: BEHCET^S SYNDROME
     Dosage: UNK
  2. COLCHICINE. [Concomitant]
     Active Substance: COLCHICINE
     Indication: BEHCET^S SYNDROME
  3. AVSOLA [Suspect]
     Active Substance: INFLIXIMAB-AXXQ
     Indication: BEHCET^S SYNDROME
     Dosage: UNK
     Route: 065

REACTIONS (3)
  - Off label use [Unknown]
  - Iron deficiency anaemia [Unknown]
  - Leukopenia [Unknown]
